FAERS Safety Report 7302326-0 (Version None)
Quarter: 2011Q1

REPORT INFORMATION
  Report Type: 
  Country: None (occurrence: None)
  Receive Date: 20110218
  Receipt Date: 20110211
  Transmission Date: 20110831
  Serious: Yes (Hospitalization)
  Sender: FDA-Public Use
  Company Number: IE-PFIZER INC-2011031946

PATIENT
  Age: 42 Day
  Sex: Female

DRUGS (1)
  1. DIFLUCAN [Suspect]
     Indication: FUNGAL INFECTION
     Dosage: 50 MG, UNK
     Route: 063

REACTIONS (2)
  - BRONCHIOLITIS [None]
  - DRUG EXPOSURE VIA BREAST MILK [None]
